FAERS Safety Report 16148850 (Version 1)
Quarter: 2019Q2

REPORT INFORMATION
  Report Type: Spontaneous
  Country: JP (occurrence: JP)
  Receive Date: 20190402
  Receipt Date: 20190402
  Transmission Date: 20190711
  Serious: Yes (Hospitalization, Other)
  Sender: FDA-Public Use
  Company Number: JP-PFIZER INC-2019132407

PATIENT
  Age: 77 Year
  Sex: Female
  Weight: 49 kg

DRUGS (4)
  1. PREDONINE [PREDNISOLONE ACETATE] [Concomitant]
  2. AZULFIDINE EN-TABS [Suspect]
     Active Substance: SULFASALAZINE
     Indication: RHEUMATOID ARTHRITIS
     Dosage: 500 MG, 2X/DAY
     Route: 048
     Dates: start: 20190201, end: 20190217
  3. OMEPRAZOLE. [Concomitant]
     Active Substance: OMEPRAZOLE
  4. CELECOX [Concomitant]
     Active Substance: CELECOXIB

REACTIONS (2)
  - Transient ischaemic attack [Unknown]
  - Drug eruption [Recovered/Resolved]

NARRATIVE: CASE EVENT DATE: 20190217
